FAERS Safety Report 9227924 (Version 2)
Quarter: 2013Q2

REPORT INFORMATION
  Report Type: Spontaneous
  Country: US (occurrence: US)
  Receive Date: 20130412
  Receipt Date: 20130617
  Transmission Date: 20140414
  Serious: Yes (Hospitalization, Other)
  Sender: FDA-Public Use
  Company Number: US-SANOFI-AVENTIS-2013SA037200

PATIENT
  Age: 32 Year
  Sex: Female
  Weight: 85.73 kg

DRUGS (14)
  1. AUBAGIO [Suspect]
     Indication: MULTIPLE SCLEROSIS
     Dosage: START DATE: ABOUT 3 MONTHS
     Route: 048
     Dates: start: 201301
  2. VITAMIN B12 [Concomitant]
     Route: 048
  3. VITAMIN C [Concomitant]
     Route: 048
  4. VITAMIN D3 [Concomitant]
     Route: 048
  5. VITAMIN E [Concomitant]
  6. MULTIVITAMINS [Concomitant]
     Route: 048
  7. TYLENOL [Concomitant]
     Indication: PAIN
     Dosage: CAPLET EXTRA STRENGTH 500 MG ORAL TABLET, 2 TABS PRN
  8. IBUPROFEN [Concomitant]
     Indication: PAIN
  9. AMBIEN [Concomitant]
     Indication: SLEEP DISORDER
     Route: 048
  10. COPAXONE [Concomitant]
     Dosage: DOSE:20 MILLIGRAM(S)/MILLILITRE
     Route: 058
  11. VALIUM [Concomitant]
     Dosage: TAKE 1 PILL BY MOUTH AS DIRECTED X 1 MONTH (30D) AS DIRECTED
     Route: 048
  12. AUGMENTIN [Concomitant]
  13. FLAGYL [Concomitant]
  14. MOTRIN [Concomitant]
     Dosage: 800 MG TABLET AS NEEDED
     Route: 048

REACTIONS (7)
  - Supraventricular tachycardia [Recovered/Resolved]
  - Palpitations [Recovered/Resolved]
  - Clostridium difficile infection [Unknown]
  - Aphthous stomatitis [Unknown]
  - Influenza [Unknown]
  - Diarrhoea [Unknown]
  - Hypoaesthesia [Unknown]
